FAERS Safety Report 5362173-6 (Version None)
Quarter: 2007Q2

REPORT INFORMATION
  Report Type: 
  Country: None (occurrence: None)
  Receive Date: 20070619
  Receipt Date: 20070612
  Transmission Date: 20071010
  Serious: Yes (Hospitalization)
  Sender: FDA-Public Use
  Company Number: US-ROCHE-496384

PATIENT
  Sex: Male

DRUGS (2)
  1. PEGASYS [Suspect]
     Route: 065
     Dates: end: 20070413
  2. COPEGUS [Suspect]
     Route: 065
     Dates: end: 20070413

REACTIONS (2)
  - ATRIAL FIBRILLATION [None]
  - NO THERAPEUTIC RESPONSE [None]
